FAERS Safety Report 5761896-4 (Version None)
Quarter: 2008Q2

REPORT INFORMATION
  Report Type: 
  Country: None (occurrence: None)
  Receive Date: 20080606
  Receipt Date: 20080528
  Transmission Date: 20081010
  Serious: Yes (Hospitalization)
  Sender: FDA-Public Use
  Company Number: ES-ABBOTT-08P-144-0453945-00

PATIENT
  Sex: Female

DRUGS (9)
  1. HUMIRA [Suspect]
     Indication: RHEUMATOID ARTHRITIS
     Route: 058
     Dates: start: 20080410
  2. LEFLUNOMIDE [Concomitant]
     Indication: RHEUMATOID ARTHRITIS
     Route: 048
     Dates: start: 20080425
  3. NSAID'S [Concomitant]
     Indication: RHEUMATOID ARTHRITIS
  4. INSULIN [Concomitant]
     Indication: DIABETES MELLITUS
  5. PAROXETINA [Concomitant]
     Indication: DEPRESSION
     Dates: start: 20050310
  6. RISEDRONATO [Concomitant]
     Indication: OSTEOPOROSIS
  7. CALCIO+VITAMINE D [Concomitant]
     Indication: OSTEOPOROSIS
     Dates: start: 20000418
  8. METILPREDNOSONE [Concomitant]
     Indication: RHEUMATOID ARTHRITIS
     Dates: start: 20080418
  9. LEFLUNOMIDE [Concomitant]
     Dates: start: 20000905

REACTIONS (5)
  - ARTHRITIS BACTERIAL [None]
  - LEUKOCYTOSIS [None]
  - MUSCULOSKELETAL PAIN [None]
  - SEPSIS [None]
  - STAPHYLOCOCCAL INFECTION [None]
